FAERS Safety Report 9890974 (Version 1)
Quarter: 2014Q1

REPORT INFORMATION
  Report Type: Spontaneous
  Country: FR (occurrence: None)
  Receive Date: 20140210
  Receipt Date: 20140210
  Transmission Date: 20141002
  Serious: Yes (Other)
  Sender: FDA-Public Use
  Company Number: ADR-2014-00215

PATIENT
  Age: 35 Year
  Sex: Male

DRUGS (7)
  1. BACLOFEN [Suspect]
     Indication: ALCOHOL USE
     Dosage: 240 MG/DAY
  2. ALCOHOL (ETHANOL) [Suspect]
  3. ALPRAZOLAM [Suspect]
     Dosage: 2MG/DAY
  4. ESCITALOPRAM [Suspect]
     Dosage: 20MG/DAY
  5. AMITRIPTYLINE [Suspect]
     Dosage: 75MG/DAY
  6. CANNABIS [Suspect]
  7. POSSIBLE OTHER BENZODIAZEPINE [Suspect]

REACTIONS (11)
  - Confusional state [None]
  - Hallucination, visual [None]
  - Hyperhidrosis [None]
  - Tremor [None]
  - Blood pressure increased [None]
  - Sinus tachycardia [None]
  - Leukocytosis [None]
  - Neutrophilia [None]
  - Hepatocellular injury [None]
  - Alcohol withdrawal syndrome [None]
  - Drug withdrawal syndrome [None]
